FAERS Safety Report 15043369 (Version 1)
Quarter: 2018Q2

REPORT INFORMATION
  Report Type: Spontaneous
  Country: GB (occurrence: GB)
  Receive Date: 20180621
  Receipt Date: 20180621
  Transmission Date: 20180711
  Serious: Yes (Other)
  Sender: FDA-Public Use
  Company Number: GB-SA-2018SA155696

PATIENT
  Age: 70 Year
  Sex: Female

DRUGS (2)
  1. AUBAGIO [Suspect]
     Active Substance: TERIFLUNOMIDE
     Indication: MULTIPLE SCLEROSIS
  2. COPAXONE [Suspect]
     Active Substance: GLATIRAMER ACETATE
     Indication: MULTIPLE SCLEROSIS

REACTIONS (10)
  - Hypersensitivity [Unknown]
  - Vomiting [Unknown]
  - Brain injury [Unknown]
  - Rash generalised [Unknown]
  - Papilloma viral infection [Unknown]
  - Neck pain [Unknown]
  - Pneumonia [Unknown]
  - Immune system disorder [Unknown]
  - Smear cervix abnormal [Unknown]
  - Muscle spasms [Unknown]

NARRATIVE: CASE EVENT DATE: 201706
